FAERS Safety Report 10388874 (Version 1)
Quarter: 2014Q1

REPORT INFORMATION
  Report Type: Spontaneous
  Country: US (occurrence: None)
  Receive Date: 20140306
  Receipt Date: 20140306
  Transmission Date: 20141002
  Serious: Yes (Hospitalization, Other)
  Sender: FDA-Public Use
  Company Number: 163-21880-13102026

PATIENT
  Age: 71 Year
  Sex: Male

DRUGS (20)
  1. REVLIMID (LENALIDOMIDE) (CAPSULES) [Suspect]
     Indication: PLASMA CELL MYELOMA
     Dosage: 21 IN 21 D
     Route: 048
     Dates: start: 20130919, end: 20131009
  2. FUROSEMIDE [Concomitant]
  3. HYDROCODONE-ACETAMINOPHEN (REMEDEINE) [Concomitant]
  4. FLUTICASONE PROPIONATE [Concomitant]
  5. ATORVASTATIN [Concomitant]
  6. CLONAZEPAM [Concomitant]
  7. GLIPIZIDE [Concomitant]
  8. ISOSORBIDE DINITRATE ER [Concomitant]
  9. NITROGLYCERIN (GLYCERYL TRINITRATE) [Concomitant]
  10. WARFARIN [Concomitant]
  11. COUMADIN (WARFARIN SODIUM) [Concomitant]
  12. ZOFRAN (ONDANSETRON HYDROCHLORIDE) [Concomitant]
  13. NITRO (GLYCERYL TRINITRATE) [Concomitant]
  14. MAGNESIUM OXIDE [Concomitant]
  15. FLONASE (FLUTICASONE PROPIONATE) [Concomitant]
  16. JANUVIA (SITAGLIPTIN PHOSPHATE) [Concomitant]
  17. ADVAIR DISKUS [Concomitant]
  18. DIGOXIN [Concomitant]
  19. ZOLOFT (SERTRALINE HYDROCHLORIDE) [Concomitant]
  20. IMDUR (ISOSORBIDE MONONITRATE) [Concomitant]

REACTIONS (2)
  - Gastrointestinal haemorrhage [None]
  - Thrombocytopenia [None]
